FAERS Safety Report 6099904-6 (Version None)
Quarter: 2009Q1

REPORT INFORMATION
  Report Type: 
  Country: None (occurrence: None)
  Receive Date: 20090303
  Receipt Date: 20090220
  Transmission Date: 20090719
  Serious: Yes (Other)
  Sender: FDA-Public Use
  Company Number: GB-TEVA-185959ISR

PATIENT
  Age: 45 Year
  Sex: Female

DRUGS (1)
  1. TRIMETHOPRIM [Suspect]
     Indication: URINARY TRACT INFECTION
     Route: 048
     Dates: start: 20051128, end: 20051130

REACTIONS (1)
  - ABORTION SPONTANEOUS [None]
